FAERS Safety Report 5731465-0 (Version None)
Quarter: 2008Q2

REPORT INFORMATION
  Report Type: 
  Country: None (occurrence: None)
  Receive Date: 20080508
  Receipt Date: 20080429
  Transmission Date: 20081010
  Serious: Yes (Death, Hospitalization)
  Sender: FDA-Public Use
  Company Number: RU-JNJFOC-20080500165

PATIENT
  Age: 33 Year
  Sex: Female

DRUGS (5)
  1. REMICADE [Suspect]
     Indication: RHEUMATOID ARTHRITIS
     Route: 042
  2. METHOTREXATE [Concomitant]
     Route: 048
  3. METHOTREXATE [Concomitant]
     Indication: RHEUMATOID ARTHRITIS
     Route: 048
  4. METIPRED [Concomitant]
     Route: 048
  5. METIPRED [Concomitant]
     Indication: RHEUMATOID ARTHRITIS
     Route: 048

REACTIONS (6)
  - BRAIN OEDEMA [None]
  - CANDIDIASIS [None]
  - DISSEMINATED INTRAVASCULAR COAGULATION [None]
  - PULMONARY OEDEMA [None]
  - PULMONARY TUBERCULOSIS [None]
  - SEPTIC SHOCK [None]
